FAERS Safety Report 17760954 (Version 1)
Quarter: 2020Q2

REPORT INFORMATION
  Report Type: Spontaneous
  Country: US (occurrence: US)
  Receive Date: 20200507
  Receipt Date: 20200507
  Transmission Date: 20200714
  Serious: Yes (Death)
  Sender: FDA-Public Use
  Company Number: None

PATIENT
  Age: 44 Year
  Sex: Female

DRUGS (11)
  1. LEVALBUTEROL AER [Concomitant]
  2. METHOTREXATE. [Concomitant]
     Active Substance: METHOTREXATE
  3. EMGALITY [Concomitant]
     Active Substance: GALCANEZUMAB-GNLM
  4. HUMIRA [Suspect]
     Active Substance: ADALIMUMAB
     Indication: PSORIATIC ARTHROPATHY
     Dosage: ?          OTHER DOSE:40/0.4 MG/ML;?
     Route: 058
     Dates: start: 20200201, end: 20200416
  5. VISTARIL [Concomitant]
     Active Substance: HYDROXYZINE PAMOATE
  6. AJOVY [Concomitant]
     Active Substance: FREMANEZUMAB-VFRM
  7. EYCOMPA [Concomitant]
  8. CLOBAZAM. [Concomitant]
     Active Substance: CLOBAZAM
  9. MONTELUKAST [Concomitant]
     Active Substance: MONTELUKAST SODIUM
  10. ZONISAMIDE. [Concomitant]
     Active Substance: ZONISAMIDE
  11. ZARIRLUKAST [Concomitant]

REACTIONS (1)
  - Death [None]
